FAERS Safety Report 10511281 (Version 1)
Quarter: 2014Q4

REPORT INFORMATION
  Report Type: Spontaneous
  Country: GB (occurrence: GB)
  Receive Date: 20141010
  Receipt Date: 20141010
  Transmission Date: 20150528
  Serious: Yes (Other)
  Sender: FDA-Public Use
  Company Number: GB-PFIZER INC-2014277151

PATIENT
  Age: 50 Year
  Sex: Male
  Weight: 92 kg

DRUGS (3)
  1. SIMVASTATIN. [Concomitant]
     Active Substance: SIMVASTATIN
     Dosage: UNK
  2. SERTRALINE HCL [Suspect]
     Active Substance: SERTRALINE HYDROCHLORIDE
     Indication: MAJOR DEPRESSION
     Dosage: UNK
     Route: 048
     Dates: start: 20121220, end: 20130901
  3. PERINDOPRIL [Concomitant]
     Active Substance: PERINDOPRIL
     Dosage: UNK

REACTIONS (3)
  - Aggression [Recovered/Resolved]
  - Personality change [Recovered/Resolved]
  - Amnesia [Recovered/Resolved with Sequelae]

NARRATIVE: CASE EVENT DATE: 20130201
